FAERS Safety Report 6855980-1 (Version None)
Quarter: 2010Q3

REPORT INFORMATION
  Report Type: 
  Country: None (occurrence: None)
  Receive Date: 20100716
  Receipt Date: 20100716
  Transmission Date: 20110219
  Serious: Yes (Life-Threatening, Hospitalization)
  Sender: FDA-Public Use
  Company Number: None

PATIENT
  Age: 67 Year
  Sex: Male
  Weight: 74.8435 kg

DRUGS (1)
  1. AVELOX [Suspect]
     Indication: PULMONARY CONGESTION
     Dosage: 400 MG 1 X DAILY
     Dates: start: 20100618

REACTIONS (2)
  - BLOOD PRESSURE DECREASED [None]
  - FALL [None]
